FAERS Safety Report 10529055 (Version 1)
Quarter: 2014Q4

REPORT INFORMATION
  Report Type: Spontaneous
  Country: US (occurrence: None)
  Receive Date: 20141016
  Receipt Date: 20141016
  Transmission Date: 20150528
  Serious: Yes (Other)
  Sender: FDA-Public Use
  Company Number: 54973 AE # 1564

PATIENT
  Age: 6 Month
  Sex: Female

DRUGS (2)
  1. BABY TEETHING [Suspect]
     Active Substance: ARABICA COFFEE BEAN\ATROPA BELLADONNA\CALCIUM PHOSPHATE\CHAMOMILE
     Indication: TEETHING
     Dosage: 1TAB Q30MINS SX PRSNT
  2. BABY TEETHING [Suspect]
     Active Substance: ARABICA COFFEE BEAN\ATROPA BELLADONNA\CALCIUM PHOSPHATE\CHAMOMILE
     Indication: ANALGESIC THERAPY
     Dosage: 1TAB Q30MINS SX PRSNT

REACTIONS (3)
  - Epilepsy [None]
  - Inappropriate schedule of drug administration [None]
  - Brain scan abnormal [None]

NARRATIVE: CASE EVENT DATE: 201209
